FAERS Safety Report 18693491 (Version 3)
Quarter: 2021Q2

REPORT INFORMATION
  Report Type: Other
  Country: GB (occurrence: GB)
  Receive Date: 20210104
  Receipt Date: 20210401
  Transmission Date: 20210717
  Serious: Yes (Disabling, Other)
  Sender: FDA-Public Use
  Company Number: GB-GLENMARK PHARMACEUTICALS-2020GMK051114

PATIENT

DRUGS (7)
  1. CLOBETASONE BUTYRATE [Suspect]
     Active Substance: CLOBETASONE BUTYRATE
     Indication: ECZEMA
     Dosage: 100 GRAM
     Route: 061
     Dates: start: 20170421
  2. ALBUTEROL [SALBUTAMOL] [Concomitant]
     Active Substance: ALBUTEROL
     Indication: PRODUCT USED FOR UNKNOWN INDICATION
     Dosage: UNK
     Route: 065
  3. PREDNISOLONE. [Suspect]
     Active Substance: PREDNISOLONE
     Dosage: 200 MILLIGRAM
     Route: 048
     Dates: start: 20170703, end: 20170708
  4. EUMOVATE [Suspect]
     Active Substance: CLOBETASONE BUTYRATE
     Indication: ECZEMA
     Dosage: 100 GRAM
     Route: 061
     Dates: start: 20180215, end: 20180419
  5. MOMETASONE FUROATE. [Suspect]
     Active Substance: MOMETASONE FUROATE
     Indication: ECZEMA
     Dosage: 2 X 100 GRAM TUBES
     Route: 061
     Dates: start: 20170710, end: 20180419
  6. SERETIDE [Concomitant]
     Active Substance: FLUTICASONE PROPIONATE\SALMETEROL XINAFOATE
     Indication: PRODUCT USED FOR UNKNOWN INDICATION
     Dosage: UNK
     Route: 065
  7. PREDNISOLONE. [Suspect]
     Active Substance: PREDNISOLONE
     Indication: ECZEMA
     Dosage: 6 DOSAGE FORM, QD
     Route: 048
     Dates: start: 20170526

REACTIONS (19)
  - Lymphadenopathy [Recovered/Resolved]
  - Steroid withdrawal syndrome [Recovered/Resolved with Sequelae]
  - Alopecia [Recovered/Resolved]
  - Skin fissures [Unknown]
  - Skin texture abnormal [Unknown]
  - Skin wrinkling [Recovered/Resolved with Sequelae]
  - Chills [Recovered/Resolved]
  - Skin exfoliation [Recovered/Resolved with Sequelae]
  - Pruritus [Recovered/Resolved]
  - Peripheral swelling [Recovered/Resolved]
  - Skin weeping [Unknown]
  - Skin hypertrophy [Unknown]
  - Dry skin [Unknown]
  - Hyperaesthesia [Recovered/Resolved with Sequelae]
  - Skin warm [Unknown]
  - Fluid retention [Unknown]
  - Menstruation delayed [Recovered/Resolved]
  - Erythema [Recovered/Resolved with Sequelae]
  - Dermatitis [Unknown]

NARRATIVE: CASE EVENT DATE: 20180401
